FAERS Safety Report 17901673 (Version 1)
Quarter: 2020Q2

REPORT INFORMATION
  Report Type: Spontaneous
  Country: FR (occurrence: FR)
  Receive Date: 20200616
  Receipt Date: 20200616
  Transmission Date: 20200714
  Serious: Yes (Hospitalization, Other)
  Sender: FDA-Public Use
  Company Number: FR-PFIZER INC-2020230103

PATIENT
  Age: 61 Year
  Sex: Female
  Weight: 67 kg

DRUGS (18)
  1. VINCRISTINE SULFATE. [Suspect]
     Active Substance: VINCRISTINE SULFATE
     Dosage: 2 MG, CYCLIC (DAY15, INDUCTION 1)
     Dates: start: 20200330, end: 20200330
  2. INOTUZUMAB OZOGAMICIN [Suspect]
     Active Substance: INOTUZUMAB OZOGAMICIN
     Dosage: 0.87 MG, CYCLIC (DAY1, INDUCTION 2)
     Dates: start: 20200415, end: 20200415
  3. VINCRISTINE SULFATE. [Suspect]
     Active Substance: VINCRISTINE SULFATE
     Dosage: 2 MG, CYCLIC (DAY8, INDUCTION 1)
     Dates: start: 20200323, end: 20200323
  4. VINCRISTINE SULFATE. [Suspect]
     Active Substance: VINCRISTINE SULFATE
     Dosage: 2 MG, CYCLIC (DAY22, INDUCTION 1)
     Dates: start: 20200406, end: 20200406
  5. METHOTREXATE. [Suspect]
     Active Substance: METHOTREXATE
     Dosage: 15 MG, CYCLIC (DAY 2, INDUCTION 2)
     Route: 037
     Dates: start: 20200416, end: 20200416
  6. INOTUZUMAB OZOGAMICIN [Suspect]
     Active Substance: INOTUZUMAB OZOGAMICIN
     Dosage: 0.87 MG, CYCLIC (DAY1, INDUCTION 2)
     Dates: start: 20200422, end: 20200422
  7. CYCLOPHOSPHAMIDE. [Suspect]
     Active Substance: CYCLOPHOSPHAMIDE
     Dosage: 522 MG, CYCLIC (DAY2, INDUCTION 2)
     Dates: start: 20200416, end: 20200416
  8. VALACICLOVIR [Concomitant]
     Active Substance: VALACYCLOVIR HYDROCHLORIDE
     Indication: ANTI-INFECTIVE THERAPY
     Dosage: 500 MG, QD
     Route: 048
     Dates: start: 20200407
  9. CYTARABINE. [Suspect]
     Active Substance: CYTARABINE
     Indication: ACUTE LYMPHOCYTIC LEUKAEMIA
     Dosage: 40 MG, CYCLIC (DAY2, INDUCTION 1)
     Dates: start: 20200317, end: 20200317
  10. VINCRISTINE SULFATE. [Suspect]
     Active Substance: VINCRISTINE SULFATE
     Indication: ACUTE LYMPHOCYTIC LEUKAEMIA
     Dosage: 2 MG, CYCLIC (DAY1, INDUCTION 1)
     Dates: start: 20200316, end: 20200316
  11. INOTUZUMAB OZOGAMICIN [Suspect]
     Active Substance: INOTUZUMAB OZOGAMICIN
     Dosage: 1.44 MG, CYCLIC (DAY1, INDUCTION 1)
     Dates: start: 20200316, end: 20200316
  12. INOTUZUMAB OZOGAMICIN [Suspect]
     Active Substance: INOTUZUMAB OZOGAMICIN
     Dosage: 1.44 MG, CYCLIC (DAY8, INDUCTION 1)
     Dates: start: 20200323, end: 20200323
  13. CYTARABINE. [Suspect]
     Active Substance: CYTARABINE
     Dosage: 40 MG, CYCLIC (DAY2, INDUCTION 2)
     Dates: start: 20200416, end: 20200416
  14. CYCLOPHOSPHAMIDE. [Suspect]
     Active Substance: CYCLOPHOSPHAMIDE
     Dosage: 522 MG, CYCLIC (DAY3, INDUCTION 2)
     Dates: start: 20200417, end: 20200417
  15. ZOLPIDEM TARTATE [Concomitant]
     Active Substance: ZOLPIDEM TARTRATE
     Indication: INSOMNIA
     Dosage: 10 MG, QD
     Route: 048
     Dates: start: 20200310
  16. METHOTREXATE. [Suspect]
     Active Substance: METHOTREXATE
     Indication: ACUTE LYMPHOCYTIC LEUKAEMIA
     Dosage: 15 MG, CYCLIC (DAY 2, INDUCTION 1)
     Route: 037
     Dates: start: 20200317, end: 20200317
  17. CYCLOPHOSPHAMIDE. [Suspect]
     Active Substance: CYCLOPHOSPHAMIDE
     Indication: ACUTE LYMPHOCYTIC LEUKAEMIA
     Dosage: 522 MG, CYCLIC (DAY1, INDUCTION 2)
     Dates: start: 20200415, end: 20200415
  18. ESOMEPRAZOLE. [Concomitant]
     Active Substance: ESOMEPRAZOLE MAGNESIUM
     Indication: GASTROOESOPHAGEAL REFLUX DISEASE
     Dosage: 20 MG, QD
     Route: 048
     Dates: start: 20200426

REACTIONS (4)
  - Pneumocystis jirovecii pneumonia [Not Recovered/Not Resolved]
  - Red blood cell count decreased [Unknown]
  - Oxygen saturation decreased [Unknown]
  - COVID-19 [Unknown]

NARRATIVE: CASE EVENT DATE: 20200428
